FAERS Safety Report 9058889 (Version 1)
Quarter: 2013Q1

REPORT INFORMATION
  Report Type: Spontaneous
  Country: DE (occurrence: DE)
  Receive Date: 20130211
  Receipt Date: 20130211
  Transmission Date: 20140127
  Serious: Yes (Other)
  Sender: FDA-Public Use
  Company Number: DE-ASTRAZENECA-2013SE07618

PATIENT
  Age: 73 Year
  Sex: Female

DRUGS (2)
  1. FASLODEX [Suspect]
     Indication: BREAST CANCER METASTATIC
     Route: 030
     Dates: start: 2010
  2. PHENPROCOUMON [Suspect]
     Route: 065

REACTIONS (6)
  - Pain in extremity [Not Recovered/Not Resolved]
  - Local swelling [Not Recovered/Not Resolved]
  - Fungal infection [Unknown]
  - Skin haemorrhage [Unknown]
  - Erythema [Not Recovered/Not Resolved]
  - Injection site reaction [Not Recovered/Not Resolved]
